FAERS Safety Report 26037995 (Version 2)
Quarter: 2025Q4

REPORT INFORMATION
  Report Type: Report from Study
  Country: US (occurrence: US)
  Receive Date: 20251112
  Receipt Date: 20251208
  Transmission Date: 20260118
  Serious: Yes (Other)
  Sender: ABBVIE
  Company Number: US-ABBVIE-6539580

PATIENT
  Sex: Female

DRUGS (1)
  1. HUMIRA [Suspect]
     Active Substance: ADALIMUMAB
     Indication: Psoriatic arthropathy
     Route: 058
     Dates: start: 20190601, end: 2024

REACTIONS (4)
  - Rotator cuff repair [Recovering/Resolving]
  - Psoriatic arthropathy [Not Recovered/Not Resolved]
  - Bursitis [Recovering/Resolving]
  - Muscle atrophy [Unknown]
